FAERS Safety Report 7583920 (Version 4)
Quarter: 2013Q2

REPORT INFORMATION
  Report Type: Report from Study
  Country: US (occurrence: US)
  Receive Date: 20100914
  Receipt Date: 20130404
  Transmission Date: 20140414
  Serious: Yes (Other)
  Sender: FDA-Public Use
  Company Number: US-AMGEN-KDC436172

PATIENT
  Age: 83 Year
  Sex: Male

DRUGS (3)
  1. DENOSUMAB [Suspect]
     Indication: PROSTATE CANCER
     Dosage: UNK UNK, UNK
     Dates: start: 20070510, end: 20081023
  2. FINASTERIDE [Concomitant]
  3. BICALUTAMIDE [Concomitant]

REACTIONS (1)
  - Osteonecrosis of jaw [Unknown]
